FAERS Safety Report 6789466-X (Version None)
Quarter: 2010Q2

REPORT INFORMATION
  Report Type: 
  Country: None (occurrence: None)
  Receive Date: 20100624
  Receipt Date: 20100330
  Transmission Date: 20101027
  Serious: Yes (Other)
  Sender: FDA-Public Use
  Company Number: US-ASTRAZENECA-2006UW28034

PATIENT
  Age: 49 Year
  Sex: Female

DRUGS (18)
  1. SEROQUEL [Suspect]
     Indication: ANXIETY
     Route: 048
     Dates: start: 20000101, end: 20020101
  2. SEROQUEL [Suspect]
     Indication: DEPRESSION
     Route: 048
     Dates: start: 20000101, end: 20020101
  3. SEROQUEL [Suspect]
     Indication: BIPOLAR DISORDER
     Route: 048
     Dates: start: 20000101, end: 20020101
  4. SEROQUEL [Suspect]
     Route: 048
     Dates: start: 20041229
  5. SEROQUEL [Suspect]
     Route: 048
     Dates: start: 20041229
  6. SEROQUEL [Suspect]
     Route: 048
     Dates: start: 20041229
  7. RISPERDAL [Suspect]
     Indication: ANXIETY
     Dates: start: 20000101, end: 20020101
  8. RISPERDAL [Suspect]
     Indication: DEPRESSION
     Dates: start: 20000101, end: 20020101
  9. RISPERDAL [Suspect]
     Indication: BIPOLAR DISORDER
     Dates: start: 20000101, end: 20020101
  10. XANAX [Concomitant]
     Dosage: ONE IN THE MORNING
     Dates: start: 20041229
  11. MOBIC [Concomitant]
     Dates: start: 20050119
  12. ARTHROTEC [Concomitant]
     Dosage: 50/200 ONE TID
     Route: 048
     Dates: start: 20050119
  13. KEFLEX [Concomitant]
     Indication: DERMATITIS
     Dates: start: 20060104
  14. LISINOPRIL [Concomitant]
     Indication: HYPERTENSION
     Dates: start: 20060104
  15. PRILOSEC [Concomitant]
     Dates: start: 20060104
  16. LOVASTATIN [Concomitant]
     Dates: start: 20060104
  17. ZOLOFT [Concomitant]
     Dosage: 150 MG BID TO 50 MG DAILY TAPERING
     Dates: start: 20060104
  18. CYMBALTA [Concomitant]
     Dosage: 30 MG DAILY FOR 7 DAYS AND THEN 60 MG DAILY
     Dates: start: 20060104

REACTIONS (3)
  - DIABETES MELLITUS [None]
  - DIABETIC NEUROPATHY [None]
  - TYPE 2 DIABETES MELLITUS [None]
